FAERS Safety Report 6128465-8 (Version None)
Quarter: 2009Q1

REPORT INFORMATION
  Report Type: 
  Country: None (occurrence: None)
  Receive Date: 20090323
  Receipt Date: 20090312
  Transmission Date: 20090719
  Serious: Yes (Other)
  Sender: FDA-Public Use
  Company Number: BE-JNJFOC-20090301209

PATIENT
  Sex: Female

DRUGS (1)
  1. REMICADE [Suspect]
     Indication: CROHN'S DISEASE
     Dosage: 3 INFUSIONS
     Route: 042

REACTIONS (3)
  - ABDOMINAL ABSCESS [None]
  - FEMALE GENITAL TRACT FISTULA [None]
  - GASTROINTESTINAL FISTULA [None]
